FAERS Safety Report 8933417 (Version 1)
Quarter: 2012Q4

REPORT INFORMATION
  Report Type: 
  Country: PT (occurrence: PT)
  Receive Date: 20121128
  Receipt Date: 20121128
  Transmission Date: 20130627
  Serious: Yes (Other)
  Sender: FDA-Public Use
  Company Number: PT-VERTEX PHARMACEUTICAL INC.-2012-025232

PATIENT
  Sex: Male

DRUGS (3)
  1. INCIVO [Suspect]
     Indication: HEPATITIS C
     Dosage: 375 mg, (2 every 8 hours)
     Route: 065
  2. RIBAVIRIN [Concomitant]
     Indication: HEPATITIS C
     Route: 065
  3. PEG-INTERFERON [Concomitant]
     Indication: HEPATITIS C
     Route: 065

REACTIONS (1)
  - Cholecystitis [Unknown]
